FAERS Safety Report 25493156 (Version 1)
Quarter: 2025Q2

REPORT INFORMATION
  Report Type: Spontaneous
  Country: FR (occurrence: FR)
  Receive Date: 20250630
  Receipt Date: 20250630
  Transmission Date: 20250717
  Serious: Yes (Death, Hospitalization, Other)
  Sender: MYLAN
  Company Number: FR-BIOVITRUM-2025-FR-005181

PATIENT
  Sex: Male

DRUGS (64)
  1. PANTOPRAZOLE [Suspect]
     Active Substance: PANTOPRAZOLE
     Indication: Product used for unknown indication
     Dosage: 40 MILLIGRAM, QD (40 MG IN EVENING)
  2. PANTOPRAZOLE [Suspect]
     Active Substance: PANTOPRAZOLE
     Dosage: 40 MILLIGRAM, QD (40 MG IN EVENING)
     Route: 065
  3. PANTOPRAZOLE [Suspect]
     Active Substance: PANTOPRAZOLE
     Dosage: 40 MILLIGRAM, QD (40 MG IN EVENING)
     Route: 065
  4. PANTOPRAZOLE [Suspect]
     Active Substance: PANTOPRAZOLE
     Dosage: 40 MILLIGRAM, QD (40 MG IN EVENING)
  5. APIXABAN [Suspect]
     Active Substance: APIXABAN
     Indication: Product used for unknown indication
     Dosage: 5 MILLIGRAM, BID (5 MG MORNING AND EVENING)
  6. APIXABAN [Suspect]
     Active Substance: APIXABAN
     Dosage: 5 MILLIGRAM, BID (5 MG MORNING AND EVENING)
     Route: 065
  7. APIXABAN [Suspect]
     Active Substance: APIXABAN
     Dosage: 5 MILLIGRAM, BID (5 MG MORNING AND EVENING)
     Route: 065
  8. APIXABAN [Suspect]
     Active Substance: APIXABAN
     Dosage: 5 MILLIGRAM, BID (5 MG MORNING AND EVENING)
  9. ONDANSETRON [Suspect]
     Active Substance: ONDANSETRON
     Indication: Product used for unknown indication
  10. ONDANSETRON [Suspect]
     Active Substance: ONDANSETRON
     Route: 065
  11. ONDANSETRON [Suspect]
     Active Substance: ONDANSETRON
     Route: 065
  12. ONDANSETRON [Suspect]
     Active Substance: ONDANSETRON
  13. METOCLOPRAMIDE [Suspect]
     Active Substance: METOCLOPRAMIDE
     Indication: Product used for unknown indication
  14. METOCLOPRAMIDE [Suspect]
     Active Substance: METOCLOPRAMIDE
     Route: 065
  15. METOCLOPRAMIDE [Suspect]
     Active Substance: METOCLOPRAMIDE
     Route: 065
  16. METOCLOPRAMIDE [Suspect]
     Active Substance: METOCLOPRAMIDE
  17. DOMPERIDONE [Suspect]
     Active Substance: DOMPERIDONE
     Indication: Product used for unknown indication
  18. DOMPERIDONE [Suspect]
     Active Substance: DOMPERIDONE
     Route: 065
  19. DOMPERIDONE [Suspect]
     Active Substance: DOMPERIDONE
     Route: 065
  20. DOMPERIDONE [Suspect]
     Active Substance: DOMPERIDONE
  21. URSODIOL [Suspect]
     Active Substance: URSODIOL
     Indication: Product used for unknown indication
     Dosage: 500 MILLIGRAM, BID (500 MG TWO TIMES A DAY.)
  22. URSODIOL [Suspect]
     Active Substance: URSODIOL
     Dosage: 500 MILLIGRAM, BID (500 MG TWO TIMES A DAY.)
     Route: 065
  23. URSODIOL [Suspect]
     Active Substance: URSODIOL
     Dosage: 500 MILLIGRAM, BID (500 MG TWO TIMES A DAY.)
     Route: 065
  24. URSODIOL [Suspect]
     Active Substance: URSODIOL
     Dosage: 500 MILLIGRAM, BID (500 MG TWO TIMES A DAY.)
  25. METHYLPREDNISOLONE [Suspect]
     Active Substance: METHYLPREDNISOLONE
     Indication: Product used for unknown indication
  26. METHYLPREDNISOLONE [Suspect]
     Active Substance: METHYLPREDNISOLONE
     Route: 065
  27. METHYLPREDNISOLONE [Suspect]
     Active Substance: METHYLPREDNISOLONE
     Route: 065
  28. METHYLPREDNISOLONE [Suspect]
     Active Substance: METHYLPREDNISOLONE
  29. PENICILLIN V [Suspect]
     Active Substance: PENICILLIN V
     Indication: Product used for unknown indication
     Dosage: UNK UNK, BID (1 MILLION UNITS IN MORNING AND EVENING)
  30. PENICILLIN V [Suspect]
     Active Substance: PENICILLIN V
     Dosage: UNK UNK, BID (1 MILLION UNITS IN MORNING AND EVENING)
     Route: 065
  31. PENICILLIN V [Suspect]
     Active Substance: PENICILLIN V
     Dosage: UNK UNK, BID (1 MILLION UNITS IN MORNING AND EVENING)
     Route: 065
  32. PENICILLIN V [Suspect]
     Active Substance: PENICILLIN V
     Dosage: UNK UNK, BID (1 MILLION UNITS IN MORNING AND EVENING)
  33. PEGCETACOPLAN [Suspect]
     Active Substance: PEGCETACOPLAN
     Indication: Paroxysmal nocturnal haemoglobinuria
  34. PEGCETACOPLAN [Suspect]
     Active Substance: PEGCETACOPLAN
     Route: 058
  35. PEGCETACOPLAN [Suspect]
     Active Substance: PEGCETACOPLAN
     Route: 058
  36. PEGCETACOPLAN [Suspect]
     Active Substance: PEGCETACOPLAN
  37. DEFERASIROX [Suspect]
     Active Substance: DEFERASIROX
     Indication: Product used for unknown indication
     Dosage: 360 MILLIGRAM, QID (360 MG FOUR TIMES A DAY)
  38. DEFERASIROX [Suspect]
     Active Substance: DEFERASIROX
     Dosage: 360 MILLIGRAM, QID (360 MG FOUR TIMES A DAY)
     Route: 065
  39. DEFERASIROX [Suspect]
     Active Substance: DEFERASIROX
     Dosage: 360 MILLIGRAM, QID (360 MG FOUR TIMES A DAY)
     Route: 065
  40. DEFERASIROX [Suspect]
     Active Substance: DEFERASIROX
     Dosage: 360 MILLIGRAM, QID (360 MG FOUR TIMES A DAY)
  41. METEOXANE [Suspect]
     Active Substance: AMOBARBITAL\BELLADONNA LEAF\DIMETHICONE\ERGOTAMINE TARTRATE
     Indication: Product used for unknown indication
     Dosage: UNK UNK, BID (TWO TIMES A DAY, NOON AND EVENING)
  42. METEOXANE [Suspect]
     Active Substance: AMOBARBITAL\BELLADONNA LEAF\DIMETHICONE\ERGOTAMINE TARTRATE
     Dosage: UNK UNK, BID (TWO TIMES A DAY, NOON AND EVENING)
     Route: 065
  43. METEOXANE [Suspect]
     Active Substance: AMOBARBITAL\BELLADONNA LEAF\DIMETHICONE\ERGOTAMINE TARTRATE
     Dosage: UNK UNK, BID (TWO TIMES A DAY, NOON AND EVENING)
     Route: 065
  44. METEOXANE [Suspect]
     Active Substance: AMOBARBITAL\BELLADONNA LEAF\DIMETHICONE\ERGOTAMINE TARTRATE
     Dosage: UNK UNK, BID (TWO TIMES A DAY, NOON AND EVENING)
  45. POTASSIUM CHLORIDE [Suspect]
     Active Substance: POTASSIUM CHLORIDE
     Indication: Product used for unknown indication
     Dosage: UNK UNK, TID (THREE TIMES A DAY)
  46. POTASSIUM CHLORIDE [Suspect]
     Active Substance: POTASSIUM CHLORIDE
     Dosage: UNK UNK, TID (THREE TIMES A DAY)
     Route: 065
  47. POTASSIUM CHLORIDE [Suspect]
     Active Substance: POTASSIUM CHLORIDE
     Dosage: UNK UNK, TID (THREE TIMES A DAY)
     Route: 065
  48. POTASSIUM CHLORIDE [Suspect]
     Active Substance: POTASSIUM CHLORIDE
     Dosage: UNK UNK, TID (THREE TIMES A DAY)
  49. URSODIOL [Suspect]
     Active Substance: URSODIOL
     Indication: Product used for unknown indication
     Dosage: 500 MILLIGRAM, BID (500 MG TWICE DAILY)
  50. URSODIOL [Suspect]
     Active Substance: URSODIOL
     Dosage: 500 MILLIGRAM, BID (500 MG TWICE DAILY)
     Route: 065
  51. URSODIOL [Suspect]
     Active Substance: URSODIOL
     Dosage: 500 MILLIGRAM, BID (500 MG TWICE DAILY)
     Route: 065
  52. URSODIOL [Suspect]
     Active Substance: URSODIOL
     Dosage: 500 MILLIGRAM, BID (500 MG TWICE DAILY)
  53. PREDNISONE [Suspect]
     Active Substance: PREDNISONE
     Indication: Product used for unknown indication
  54. PREDNISONE [Suspect]
     Active Substance: PREDNISONE
     Route: 065
  55. PREDNISONE [Suspect]
     Active Substance: PREDNISONE
     Route: 065
  56. PREDNISONE [Suspect]
     Active Substance: PREDNISONE
  57. PENICILLIN V POTASSIUM [Suspect]
     Active Substance: PENICILLIN V POTASSIUM
     Indication: Product used for unknown indication
     Dosage: UNK UNK, BID (1 MILLION UNITS MORNING AND EVENING)
  58. PENICILLIN V POTASSIUM [Suspect]
     Active Substance: PENICILLIN V POTASSIUM
     Dosage: UNK UNK, BID (1 MILLION UNITS MORNING AND EVENING)
     Route: 065
  59. PENICILLIN V POTASSIUM [Suspect]
     Active Substance: PENICILLIN V POTASSIUM
     Dosage: UNK UNK, BID (1 MILLION UNITS MORNING AND EVENING)
     Route: 065
  60. PENICILLIN V POTASSIUM [Suspect]
     Active Substance: PENICILLIN V POTASSIUM
     Dosage: UNK UNK, BID (1 MILLION UNITS MORNING AND EVENING)
  61. INFLIXIMAB [Suspect]
     Active Substance: INFLIXIMAB
     Indication: Product used for unknown indication
     Dosage: 120 MILLIGRAM, Q2W (120 MG EVERY TWO WEEKS)
  62. INFLIXIMAB [Suspect]
     Active Substance: INFLIXIMAB
     Dosage: 120 MILLIGRAM, Q2W (120 MG EVERY TWO WEEKS)
     Route: 065
  63. INFLIXIMAB [Suspect]
     Active Substance: INFLIXIMAB
     Dosage: 120 MILLIGRAM, Q2W (120 MG EVERY TWO WEEKS)
     Route: 065
  64. INFLIXIMAB [Suspect]
     Active Substance: INFLIXIMAB
     Dosage: 120 MILLIGRAM, Q2W (120 MG EVERY TWO WEEKS)

REACTIONS (12)
  - Septic shock [Fatal]
  - Escherichia infection [Fatal]
  - Campylobacter infection [Fatal]
  - Myelodysplastic syndrome [Fatal]
  - Gene mutation [Fatal]
  - Multiple organ dysfunction syndrome [Fatal]
  - Crohn^s disease [Fatal]
  - Pulmonary embolism [Fatal]
  - Splenic embolism [Fatal]
  - Thrombocytopenia [Fatal]
  - Acute kidney injury [Fatal]
  - Drug ineffective [Unknown]
